FAERS Safety Report 8581730-7 (Version None)
Quarter: 2012Q3

REPORT INFORMATION
  Report Type: 
  Country: None (occurrence: None)
  Receive Date: 20120727
  Receipt Date: 20120713
  Transmission Date: 20120928
  Serious: Yes (Other)
  Sender: FDA-Public Use
  Company Number: FK201202042

PATIENT

DRUGS (1)
  1. LEUCOVORIN CALCIUM [Suspect]
     Indication: PRODUCT USED FOR UNKNOWN INDICATION
     Dosage: 50 MG/5 ML

REACTIONS (3)
  - CHILLS [None]
  - PYREXIA [None]
  - VOMITING [None]
